FAERS Safety Report 21919141 (Version 1)
Quarter: 2023Q1

REPORT INFORMATION
  Report Type: Spontaneous
  Country: NL (occurrence: NL)
  Receive Date: 20230127
  Receipt Date: 20230127
  Transmission Date: 20230418
  Serious: Yes (Other)
  Sender: FDA-Public Use
  Company Number: NL-LRB-00859434

PATIENT
  Sex: Female
  Weight: 75 kg

DRUGS (3)
  1. ATORVASTATIN [Suspect]
     Active Substance: ATORVASTATIN
     Indication: Hypercholesterolaemia
     Dosage: 10 MILLIGRAM, DAILY
     Route: 065
     Dates: start: 20221207, end: 20221221
  2. CHLOORTALIDON TABLET 12,5MG / Brand name not specified [Concomitant]
     Indication: Product used for unknown indication
     Dosage: TABLET, 12.5 MG (MILLIGRAMS)
     Route: 065
  3. LOSARTAN TABLET FO  50MG / COZAAR TABLET FILMOMHULD  50MG [Concomitant]
     Indication: Product used for unknown indication
     Dosage: FILM-COATED TABLET, 50 MG (MILLIGRAMS)
     Route: 065

REACTIONS (1)
  - Diverticulitis [Recovering/Resolving]
